FAERS Safety Report 25189049 (Version 3)
Quarter: 2025Q3

REPORT INFORMATION
  Report Type: Report from Study
  Country: IN (occurrence: IN)
  Receive Date: 20250411
  Receipt Date: 20250912
  Transmission Date: 20251021
  Serious: Yes (Other)
  Sender: ROCHE
  Company Number: IN-ROCHE-10000252040

PATIENT
  Age: 48 Year
  Sex: Female

DRUGS (9)
  1. PERJETA [Suspect]
     Active Substance: PERTUZUMAB
     Indication: Breast cancer metastatic
     Route: 042
     Dates: start: 20220820
  2. PERJETA [Suspect]
     Active Substance: PERTUZUMAB
     Indication: Breast cancer
     Route: 042
     Dates: start: 20220820
  3. PERJETA [Suspect]
     Active Substance: PERTUZUMAB
     Route: 042
     Dates: start: 20250814
  4. PERJETA [Suspect]
     Active Substance: PERTUZUMAB
     Route: 042
     Dates: start: 20250726
  5. PERJETA [Suspect]
     Active Substance: PERTUZUMAB
     Route: 042
  6. TAMOXIFEN [Concomitant]
     Active Substance: TAMOXIFEN
  7. TRASTUZUMAB [Concomitant]
     Active Substance: TRASTUZUMAB
  8. BILASTINE [Concomitant]
     Active Substance: BILASTINE
  9. ALPRAZOLAM [Concomitant]
     Active Substance: ALPRAZOLAM

REACTIONS (2)
  - Breast mass [Unknown]
  - Off label use [Unknown]

NARRATIVE: CASE EVENT DATE: 20250814
